FAERS Safety Report 20204166 (Version 2)
Quarter: 2021Q4

REPORT INFORMATION
  Report Type: Spontaneous
  Country: US (occurrence: US)
  Receive Date: 20211220
  Receipt Date: 20211223
  Transmission Date: 20220303
  Serious: Yes (Other)
  Sender: FDA-Public Use
  Company Number: US-SA-SAC20211215001306

PATIENT
  Age: 31 Year
  Sex: Female

DRUGS (1)
  1. AUBAGIO [Suspect]
     Active Substance: TERIFLUNOMIDE
     Indication: Multiple sclerosis
     Dosage: 14 MG, QD
     Route: 048
     Dates: start: 201807

REACTIONS (6)
  - Multiple sclerosis relapse [Unknown]
  - Multiple sclerosis [Unknown]
  - Hypoaesthesia [Recovering/Resolving]
  - Condition aggravated [Recovering/Resolving]
  - Paraesthesia [Recovering/Resolving]
  - Condition aggravated [Recovering/Resolving]
